FAERS Safety Report 23401567 (Version 1)
Quarter: 2024Q1

REPORT INFORMATION
  Report Type: Spontaneous
  Country: US (occurrence: US)
  Receive Date: 20240115
  Receipt Date: 20240115
  Transmission Date: 20240410
  Serious: No
  Sender: FDA-Public Use
  Company Number: US-PFIZER INC-202400010994

PATIENT
  Age: 58 Year
  Sex: Female

DRUGS (1)
  1. IBRANCE [Suspect]
     Active Substance: PALBOCICLIB
     Dosage: ONE 125MG TABLET ORALLY DAILY, 3 WEEKS ON, ONE WEEK OFF
     Dates: start: 20230821

REACTIONS (2)
  - Sinus disorder [Recovering/Resolving]
  - Product dose omission issue [Unknown]
